FAERS Safety Report 9861733 (Version 1)
Quarter: 2014Q1

REPORT INFORMATION
  Report Type: Spontaneous
  Country: US (occurrence: None)
  Receive Date: 20140130
  Receipt Date: 20140130
  Transmission Date: 20141002
  Serious: Yes (Death)
  Sender: FDA-Public Use
  Company Number: 2014AP000408

PATIENT
  Age: 85 Year
  Sex: Female

DRUGS (2)
  1. TRAZODONE HYDROCHLORIDE TABLETS [Suspect]
  2. ACETAMINOPHEN W/HYDROCODONE [Suspect]

REACTIONS (1)
  - Completed suicide [None]
